FAERS Safety Report 15602987 (Version 1)
Quarter: 2018Q4

REPORT INFORMATION
  Report Type: Report from Study
  Country: ES (occurrence: ES)
  Receive Date: 20181109
  Receipt Date: 20181109
  Transmission Date: 20190205
  Serious: Yes (Hospitalization, Other)
  Sender: FDA-Public Use
  Company Number: ES-TEVA-2018-ES-973525

PATIENT
  Age: 85 Year
  Sex: Female

DRUGS (11)
  1. PARACETAMOL (12A) [Concomitant]
     Active Substance: ACETAMINOPHEN
     Dosage: 3 GRAM DAILY; 1-1-1
     Route: 048
  2. ATORVASTATINA (7400A) [Concomitant]
     Active Substance: ATORVASTATIN
     Indication: DYSLIPIDAEMIA
     Dosage: 20 MILLIGRAM DAILY; 0-0-1
     Route: 048
  3. BISOPROLOL 2,5 MG COMPRIMIDO [Concomitant]
     Active Substance: BISOPROLOL
     Dosage: 5 MILLIGRAM DAILY; 1-0-1
     Route: 048
  4. ZALDIAR [Concomitant]
     Active Substance: ACETAMINOPHEN\TRAMADOL HYDROCHLORIDE
     Dosage: 3 DOSAGE FORMS DAILY; 37.5/325MG 1-1-1
     Route: 048
  5. ALDOCUMAR [Concomitant]
     Active Substance: WARFARIN SODIUM
     Route: 048
  6. OMEPRAZOL (2141A) [Concomitant]
     Active Substance: OMEPRAZOLE
     Dosage: 20 MILLIGRAM DAILY; 0-0-1
     Route: 048
  7. ENALAPRIL 5 MG [Suspect]
     Active Substance: ENALAPRIL
     Indication: CARDIAC FAILURE
     Route: 048
     Dates: start: 201705, end: 20171106
  8. CLEXANE 8.000 UI (80 MG)/ 0,8 ML SOLUCION INYECTABLE EN JERINGA PRECAR [Concomitant]
     Dosage: 80 MILLIGRAM DAILY; FROM THE 06/11/2017 YOU LOWER DOSES TO 60MG
     Route: 058
     Dates: start: 20171010
  9. SEGURIL 40 MG COMPRIMIDOS [Interacting]
     Active Substance: FUROSEMIDE
     Indication: CARDIAC FAILURE
     Route: 048
     Dates: start: 20161219, end: 20171106
  10. METFORMINA (1359A) [Concomitant]
     Active Substance: METFORMIN HYDROCHLORIDE
     Indication: DIABETES MELLITUS
     Dosage: 850 MILLIGRAM DAILY; 850 MG, 1/2-0-1/2
     Route: 048
  11. LANTUS [Concomitant]
     Active Substance: INSULIN GLARGINE
     Indication: DIABETES MELLITUS
     Dosage: 20-0-0
     Route: 058

REACTIONS (2)
  - Acute kidney injury [Recovered/Resolved]
  - Drug interaction [Unknown]

NARRATIVE: CASE EVENT DATE: 201711
